FAERS Safety Report 6927505-3 (Version None)
Quarter: 2010Q3

REPORT INFORMATION
  Report Type: 
  Country: None (occurrence: None)
  Receive Date: 20100817
  Receipt Date: 20100804
  Transmission Date: 20110219
  Serious: Yes (Hospitalization)
  Sender: FDA-Public Use
  Company Number: US-ABBOTT-10P-163-0659252-00

PATIENT
  Sex: Male

DRUGS (7)
  1. NORVIR [Suspect]
     Indication: PRODUCT USED FOR UNKNOWN INDICATION
     Dates: start: 20100416
  2. REYATAZ [Suspect]
     Indication: HIV INFECTION
     Dates: start: 20100416, end: 20100602
  3. TRUVADA [Suspect]
     Indication: PRODUCT USED FOR UNKNOWN INDICATION
     Dates: start: 20100416
  4. FLUCONAZOLE [Concomitant]
     Indication: DYSPHAGIA
  5. DAPSONE [Concomitant]
     Indication: PRODUCT USED FOR UNKNOWN INDICATION
  6. LAMISIL [Concomitant]
     Indication: PRODUCT USED FOR UNKNOWN INDICATION
  7. PREDNISONE [Concomitant]
     Indication: PRODUCT USED FOR UNKNOWN INDICATION

REACTIONS (6)
  - DEHYDRATION [None]
  - DYSPHAGIA [None]
  - HYPERCALCAEMIA [None]
  - IMPAIRED WORK ABILITY [None]
  - MOBILITY DECREASED [None]
  - RENAL FAILURE [None]
